FAERS Safety Report 12246035 (Version 2)
Quarter: 2016Q2

REPORT INFORMATION
  Report Type: Spontaneous
  Country: CA (occurrence: CA)
  Receive Date: 20160407
  Receipt Date: 20160427
  Transmission Date: 20160815
  Serious: Yes (Death, Life-Threatening, Hospitalization, Other)
  Sender: FDA-Public Use
  Company Number: CA-MDT-ADR-2015-02305

PATIENT
  Sex: Male

DRUGS (1)
  1. LIORESAL [Suspect]
     Active Substance: BACLOFEN
     Dosage: 69.73 MCG/DAY
     Route: 037

REACTIONS (6)
  - Muscle spasticity [Fatal]
  - Urinary tract infection [Fatal]
  - Osteomyelitis [Fatal]
  - Pyrexia [Fatal]
  - Death [Fatal]
  - Septic shock [Fatal]
